FAERS Safety Report 10070041 (Version 2)
Quarter: 2014Q2

REPORT INFORMATION
  Report Type: Spontaneous
  Country: US (occurrence: None)
  Receive Date: 20140408
  Receipt Date: 20140411
  Transmission Date: 20141212
  Serious: Yes (Death)
  Sender: FDA-Public Use
  Company Number: 2014-US-003686

PATIENT
  Age: 13 Year
  Sex: Female

DRUGS (7)
  1. XYREM [Suspect]
     Indication: INSOMNIA
     Route: 048
     Dates: start: 201311
  2. DIASTAT  (DIAZEPAM) [Concomitant]
  3. RISPERDAL [Concomitant]
  4. ONFI (CLOBAZAM) TABLET [Concomitant]
  5. STRATTERA (ATOMOXETINE HYDROCHLORIDE) CAPSULE [Concomitant]
  6. ZONEGRAN (ZONISAMIDE) CAPSULE [Concomitant]
  7. KEPPRA (LEVETIRACETAM) TABLET [Concomitant]

REACTIONS (3)
  - Convulsion [None]
  - Off label use [None]
  - Epilepsy [None]
